FAERS Safety Report 5866153-3 (Version None)
Quarter: 2008Q3

REPORT INFORMATION
  Report Type: 
  Country: None (occurrence: None)
  Receive Date: 20080829
  Receipt Date: 20080821
  Transmission Date: 20090109
  Serious: Yes (Disabling, Other)
  Sender: FDA-Public Use
  Company Number: US-MERCK-0802USA03276

PATIENT
  Age: 59 Year
  Sex: Female
  Weight: 72 kg

DRUGS (3)
  1. FOSAMAX [Suspect]
     Indication: OSTEOPOROSIS
     Route: 048
     Dates: start: 19980101, end: 19990101
  2. FOSAMAX [Suspect]
     Route: 048
     Dates: start: 19991101, end: 20000901
  3. FOSAMAX [Suspect]
     Route: 048
     Dates: start: 20000101, end: 20060301

REACTIONS (53)
  - ABDOMINAL PAIN UPPER [None]
  - ADVERSE DRUG REACTION [None]
  - ARTHRALGIA [None]
  - ARTHRITIS [None]
  - ARTHROPATHY [None]
  - ASTHMA [None]
  - BLOOD CHOLESTEROL INCREASED [None]
  - BREAST CANCER IN SITU [None]
  - BREAST DISORDER [None]
  - CARTILAGE INJURY [None]
  - CONJUNCTIVITIS [None]
  - CONTUSION [None]
  - COUGH [None]
  - DENTAL CARIES [None]
  - DEPRESSION [None]
  - DIVERTICULUM [None]
  - DRY EYE [None]
  - DYSPEPSIA [None]
  - DYSPNOEA [None]
  - EXOSTOSIS [None]
  - FACET JOINT SYNDROME [None]
  - GASTRIC POLYPS [None]
  - GASTRITIS [None]
  - GASTROOESOPHAGEAL REFLUX DISEASE [None]
  - GLAUCOMA [None]
  - HERPES ZOSTER [None]
  - HORMONE THERAPY [None]
  - HYPERTENSION [None]
  - INTERVERTEBRAL DISC DEGENERATION [None]
  - LUNG NEOPLASM [None]
  - MENISCUS LESION [None]
  - MUSCLE STRAIN [None]
  - NAUSEA [None]
  - NEUROFIBROMA [None]
  - ODYNOPHAGIA [None]
  - OESOPHAGEAL ULCER [None]
  - ORAL INFECTION [None]
  - OSTEOMYELITIS [None]
  - OSTEONECROSIS [None]
  - PAIN IN JAW [None]
  - POSTNASAL DRIP [None]
  - PRIMARY SEQUESTRUM [None]
  - RIB FRACTURE [None]
  - SCIATICA [None]
  - SPINAL CORD DISORDER [None]
  - STRESS [None]
  - TENDON SHEATH LESION EXCISION [None]
  - TENDONITIS [None]
  - THROAT IRRITATION [None]
  - TOOTH DISORDER [None]
  - TOOTH INFECTION [None]
  - TOOTH LOSS [None]
  - VOMITING [None]
